FAERS Safety Report 4274956-4 (Version None)
Quarter: 2004Q1

REPORT INFORMATION
  Report Type: 
  Country: None (occurrence: None)
  Receive Date: 20040120
  Receipt Date: 20040105
  Transmission Date: 20041129
  Serious: Yes (Death, Hospitalization)
  Sender: FDA-Public Use
  Company Number: 2004S1000019

PATIENT
  Age: 33 Year
  Sex: Female

DRUGS (9)
  1. CLOZAPINE [Suspect]
     Dosage: 400 MG Q HS, ORAL
     Route: 048
     Dates: start: 20031217
  2. AZITHROMYCIN [Concomitant]
  3. CEPHALEXIN [Concomitant]
  4. DIVALPROEX SODIUM [Concomitant]
  5. FLUPHENAZINE (PM) [Concomitant]
  6. LEVOTHYROXINE SODIUM [Concomitant]
  7. LORAZEPAM (PM) [Concomitant]
  8. PSEUDOEPHEDRINE (PM) [Concomitant]
  9. VENLAFAXINE HCL [Concomitant]

REACTIONS (2)
  - PNEUMONIA BACTERIAL [None]
  - PNEUMONIA VIRAL [None]
